FAERS Safety Report 9513199 (Version 1)
Quarter: 2013Q1

REPORT INFORMATION
  Report Type: Spontaneous
  Country: US (occurrence: None)
  Receive Date: 20130305
  Receipt Date: 20130305
  Transmission Date: 20140127
  Serious: Yes (Other)
  Sender: FDA-Public Use
  Company Number: 163-21880-12102662

PATIENT
  Age: 88 Year
  Sex: Female

DRUGS (4)
  1. REVLIMID(LENALIDOMIDE)(5 MILLIGRAM, CAPSULES) [Suspect]
     Indication: PLASMA CELL MYELOMA
     Dosage: 5 MG, 21 IN 28 D PO
     Route: 048
     Dates: start: 20061116
  2. PREVALITE [Concomitant]
  3. IMODIUM [Concomitant]
  4. LOVENOX [Concomitant]

REACTIONS (1)
  - Tooth disorder [None]
